FAERS Safety Report 4971917-4 (Version None)
Quarter: 2006Q2

REPORT INFORMATION
  Report Type: 
  Country: None (occurrence: None)
  Receive Date: 20060413
  Receipt Date: 20060407
  Transmission Date: 20061013
  Serious: Yes (Other)
  Sender: FDA-Public Use
  Company Number: GB-MERCK-0604GBR00055

PATIENT
  Age: 52 Year
  Sex: Male
  Weight: 85 kg

DRUGS (3)
  1. VYTORIN [Suspect]
     Indication: HYPERLIPIDAEMIA
     Route: 048
     Dates: start: 20060311, end: 20060314
  2. IBUPROFEN [Concomitant]
     Indication: ARTHRALGIA
     Route: 048
     Dates: start: 20021009
  3. ATORVASTATIN CALCIUM [Concomitant]
     Indication: LIPIDS
     Route: 048
     Dates: start: 19990413, end: 20060310

REACTIONS (5)
  - ABDOMINAL PAIN UPPER [None]
  - ARTHRALGIA [None]
  - MYALGIA [None]
  - TINNITUS [None]
  - WHEEZING [None]
